FAERS Safety Report 7046032-9 (Version None)
Quarter: 2010Q4

REPORT INFORMATION
  Report Type: 
  Country: None (occurrence: None)
  Receive Date: 20101013
  Receipt Date: 20101013
  Transmission Date: 20110411
  Serious: Yes (Hospitalization)
  Sender: FDA-Public Use
  Company Number: None

PATIENT
  Age: 46 Year
  Sex: Female
  Weight: 83.9154 kg

DRUGS (1)
  1. AMOXICILLIN AND CLAVULANATE POTASSIUM [Suspect]
     Indication: PNEUMONIA
     Dosage: 1 TABLET TWICE DAILY PO
     Route: 048
     Dates: start: 20100929, end: 20101006

REACTIONS (3)
  - CONDITION AGGRAVATED [None]
  - PNEUMONIA [None]
  - PRODUCT QUALITY ISSUE [None]
